FAERS Safety Report 10548375 (Version 1)
Quarter: 2014Q4

REPORT INFORMATION
  Report Type: Spontaneous
  Country: US (occurrence: US)
  Receive Date: 20141028
  Receipt Date: 20141028
  Transmission Date: 20150529
  Serious: No
  Sender: FDA-Public Use
  Company Number: US-MYLANLABS-2013S1028860

PATIENT
  Sex: Female

DRUGS (1)
  1. METFORMIN HYDROCHLORIDE EXTENDED-RELEASE [Suspect]
     Active Substance: METFORMIN HYDROCHLORIDE
     Indication: DIABETES MELLITUS
     Dosage: 500 MG,QD
     Route: 048
     Dates: start: 201311

REACTIONS (1)
  - Retching [Not Recovered/Not Resolved]

NARRATIVE: CASE EVENT DATE: 201311
